FAERS Safety Report 7211578-7 (Version None)
Quarter: 2011Q1

REPORT INFORMATION
  Report Type: 
  Country: None (occurrence: None)
  Receive Date: 20110105
  Receipt Date: 20101228
  Transmission Date: 20110831
  Serious: No
  Sender: FDA-Public Use
  Company Number: US-PFIZER INC-2010180658

PATIENT
  Sex: Male

DRUGS (3)
  1. LIPITOR [Suspect]
     Dosage: UNK
  2. NIACIN [Suspect]
     Dosage: UNK
  3. ZOCOR [Concomitant]
     Dosage: UNK

REACTIONS (2)
  - HIGH DENSITY LIPOPROTEIN DECREASED [None]
  - UNEVALUABLE EVENT [None]
